FAERS Safety Report 16174837 (Version 1)
Quarter: 2019Q2

REPORT INFORMATION
  Report Type: Spontaneous
  Country: FR (occurrence: FR)
  Receive Date: 20190409
  Receipt Date: 20190409
  Transmission Date: 20190711
  Serious: Yes (Other)
  Sender: FDA-Public Use
  Company Number: FR-STALLERGENES SAS-2065557

PATIENT
  Age: 52 Year
  Sex: Female

DRUGS (4)
  1. STALORAL [Suspect]
     Active Substance: ALLERGENIC EXTRACTS
     Route: 060
     Dates: start: 201706
  2. LORATADINE. [Concomitant]
     Active Substance: LORATADINE
     Route: 048
  3. SINGULAIR [Concomitant]
     Active Substance: MONTELUKAST SODIUM
     Route: 048
  4. ORALAIR [Suspect]
     Active Substance: ANTHOXANTHUM ODORATUM POLLEN\DACTYLIS GLOMERATA POLLEN\LOLIUM PERENNE POLLEN\PHLEUM PRATENSE POLLEN\POA PRATENSIS POLLEN
     Indication: ASTHMA
     Route: 060
     Dates: start: 201901

REACTIONS (8)
  - Bronchial obstruction [Recovering/Resolving]
  - Abdominal pain [Recovering/Resolving]
  - Lip pain [Recovering/Resolving]
  - Asthma [Recovering/Resolving]
  - Asthmatic crisis [Recovering/Resolving]
  - Pruritus [Recovering/Resolving]
  - Migraine [Recovering/Resolving]
  - Oropharyngeal pain [Recovering/Resolving]

NARRATIVE: CASE EVENT DATE: 20190123
